FAERS Safety Report 3782016 (Version 3)
Quarter: 2013Q1

REPORT INFORMATION
  Report Type: Spontaneous
  Country: US (occurrence: None)
  Receive Date: 20020213
  Receipt Date: 20130131
  Transmission Date: 20140127
  Serious: Yes (Hospitalization)
  Sender: FDA-Public Use
  Company Number: 2012-182

PATIENT
  Age: 37 Year
  Sex: Female
  Weight: 102 kg

DRUGS (1)
  1. PRIALT [Suspect]
     Indication: PAIN
     Dosage: UNK UG, ONCE/HOUR, INTRATHECAL
     Route: 037
     Dates: start: 20120130

REACTIONS (5)
  - Crying [None]
  - Skin burning sensation [None]
  - Confusional state [None]
  - Peripheral coldness [None]
  - Hyperaesthesia [None]
